FAERS Safety Report 4653443-5 (Version None)
Quarter: 2005Q2

REPORT INFORMATION
  Report Type: 
  Country: None (occurrence: None)
  Receive Date: 20050505
  Receipt Date: 20040907
  Transmission Date: 20051028
  Serious: Yes (Hospitalization)
  Sender: FDA-Public Use
  Company Number: 88

PATIENT
  Age: 66 Year
  Sex: Male

DRUGS (17)
  1. MELPHALAN [Suspect]
     Indication: MULTIPLE MYELOMA
     Route: 042
     Dates: start: 20040722
  2. THALIDOMIDE [Suspect]
     Indication: MULTIPLE MYELOMA
     Route: 048
     Dates: start: 20040620, end: 20040623
  3. ATIVAN [Concomitant]
  4. OXYCONTIN [Concomitant]
  5. ACYCLOVIR [Concomitant]
     Indication: PROPHYLAXIS
  6. PROTONIX [Concomitant]
     Indication: PROPHYLAXIS
     Dosage: 40MG PER DAY
     Dates: start: 20040721
  7. DIFLUCAN [Concomitant]
     Indication: PROPHYLAXIS
     Dosage: 200MG PER DAY
  8. VALSARTAN [Concomitant]
     Indication: HYPERTENSION
     Dosage: 80MG PER DAY
     Route: 048
     Dates: start: 20040721
  9. LOVASTATIN [Concomitant]
     Dosage: 40MG PER DAY
     Route: 048
     Dates: start: 20040721
  10. TOBRAMYCIN [Concomitant]
     Dosage: 300MG SINGLE DOSE
     Route: 042
     Dates: start: 20040801, end: 20040801
  11. PROCRIT [Concomitant]
     Dosage: 40U WEEKLY
  12. M.V.I. [Concomitant]
  13. REGLAN [Concomitant]
  14. ZOFRAN [Concomitant]
  15. AMBIEN [Concomitant]
  16. OXYCONTIN [Concomitant]
     Dosage: 40MG TWICE PER DAY
  17. AREDIA [Concomitant]
     Dosage: 60MG MONTHLY

REACTIONS (12)
  - DEHYDRATION [None]
  - DIARRHOEA [None]
  - FATIGUE [None]
  - HYPOTENSION [None]
  - ISCHAEMIC HEPATITIS [None]
  - MUCOSAL INFLAMMATION [None]
  - NEUTROPENIA [None]
  - OVERDOSE [None]
  - PYREXIA [None]
  - RENAL TUBULAR NECROSIS [None]
  - SOMNOLENCE [None]
  - STAPHYLOCOCCAL BACTERAEMIA [None]
